FAERS Safety Report 5081915-0 (Version None)
Quarter: 2006Q3

REPORT INFORMATION
  Report Type: 
  Country: None (occurrence: None)
  Receive Date: 20060816
  Receipt Date: 20060804
  Transmission Date: 20061208
  Serious: Yes (Other)
  Sender: FDA-Public Use
  Company Number: US-ROCHE-458674

PATIENT
  Sex: Male

DRUGS (2)
  1. ACCUTANE [Suspect]
     Indication: DRUG USE FOR UNKNOWN INDICATION
     Route: 048
     Dates: start: 19891215, end: 19910115
  2. ACCUTANE [Suspect]
     Route: 048
     Dates: start: 19910415, end: 19920215

REACTIONS (3)
  - AUTOIMMUNE DISORDER [None]
  - HEPATIC CIRRHOSIS [None]
  - HEPATIC FAILURE [None]
